FAERS Safety Report 4899855-6 (Version None)
Quarter: 2006Q1

REPORT INFORMATION
  Report Type: 
  Country: None (occurrence: None)
  Receive Date: 20060120
  Receipt Date: 20051117
  Transmission Date: 20060701
  Serious: Yes (Other)
  Sender: FDA-Public Use
  Company Number: 425461

PATIENT
  Age: 42 Year
  Sex: Female

DRUGS (2)
  1. VESANOID [Suspect]
     Indication: ACUTE PROMYELOCYTIC LEUKAEMIA
     Dosage: 10 MG 2 PER DAY ORAL
     Route: 048
     Dates: start: 20040915
  2. IDARUBICIN HCL [Concomitant]

REACTIONS (12)
  - DEAFNESS [None]
  - DEAFNESS UNILATERAL [None]
  - DRY SKIN [None]
  - EAR DISCOMFORT [None]
  - EAR DISORDER [None]
  - EYE INFECTION [None]
  - FATIGUE [None]
  - HEADACHE [None]
  - INFECTION [None]
  - RASH [None]
  - SCAB [None]
  - URTICARIA [None]
